FAERS Safety Report 11813699 (Version 1)
Quarter: 2015Q4

REPORT INFORMATION
  Report Type: Spontaneous
  Country: US (occurrence: None)
  Receive Date: 20151208
  Receipt Date: 20151208
  Transmission Date: 20160305
  Serious: No
  Sender: FDA-Public Use
  Company Number: None

PATIENT
  Age: 62 Year
  Sex: Female
  Weight: 59.8 kg

DRUGS (2)
  1. CISPLATIN. [Suspect]
     Active Substance: CISPLATIN
     Dosage: 7 DAY DELAY BETWEEN CYCLE 2 AND 3
     Dates: end: 20120712
  2. ETOPOSIDE (VP-16) [Suspect]
     Active Substance: ETOPOSIDE
     Dosage: 7 DAY DELAY BETWEEN CYCLE 2 AND 3
     Dates: end: 20120712

REACTIONS (3)
  - White blood cell count decreased [None]
  - Oesophagitis [None]
  - Neutrophil count decreased [None]

NARRATIVE: CASE EVENT DATE: 20120625
